FAERS Safety Report 7388208-7 (Version None)
Quarter: 2011Q1

REPORT INFORMATION
  Report Type: 
  Country: None (occurrence: None)
  Receive Date: 20110329
  Receipt Date: 20110329
  Transmission Date: 20110831
  Serious: No
  Sender: FDA-Public Use
  Company Number: None

PATIENT
  Age: 30 Year
  Sex: Female
  Weight: 60.782 kg

DRUGS (1)
  1. TOPAMAX [Suspect]
     Indication: DECREASED APPETITE
     Dosage: 25MG AT BEDTIME BY MOUTH
     Route: 048
     Dates: start: 20110218, end: 20110228

REACTIONS (3)
  - EYE PAIN [None]
  - INTRAOCULAR PRESSURE INCREASED [None]
  - VISUAL ACUITY REDUCED [None]
